FAERS Safety Report 9293390 (Version 1)
Quarter: 2013Q2

REPORT INFORMATION
  Report Type: Spontaneous
  Country: US (occurrence: US)
  Receive Date: 20130516
  Receipt Date: 20130516
  Transmission Date: 20140414
  Serious: No
  Sender: FDA-Public Use
  Company Number: US-ASTRAZENECA-2013SE31606

PATIENT
  Age: 71 Year
  Sex: Female
  Weight: 86.2 kg

DRUGS (6)
  1. SYMBICORT [Suspect]
     Indication: CHRONIC OBSTRUCTIVE PULMONARY DISEASE
     Dosage: 160/4.5 MCG, 2 PUFFS TWO TIMES A DAY
     Route: 055
     Dates: start: 2011
  2. GREEN COFFEE BEAN EXTRACT [Concomitant]
     Indication: OVERWEIGHT
     Route: 048
     Dates: start: 2012
  3. SPIRIVA [Concomitant]
     Dosage: RESCUE INHALER, PRN
     Route: 055
  4. METFORMIN [Concomitant]
     Indication: GLUCOSE TOLERANCE IMPAIRED
     Dosage: DAILY
     Route: 048
     Dates: start: 2010
  5. VYTORIN [Concomitant]
     Indication: BLOOD CHOLESTEROL ABNORMAL
     Dosage: DAILY
     Route: 048
  6. SYNTHROID [Concomitant]
     Indication: BASEDOW^S DISEASE
     Dosage: CONT
     Route: 048
     Dates: start: 1998

REACTIONS (3)
  - Weight increased [Recovered/Resolved]
  - Weight decreased [Unknown]
  - Dysphonia [Not Recovered/Not Resolved]
